FAERS Safety Report 20873058 (Version 1)
Quarter: 2022Q2

REPORT INFORMATION
  Report Type: Spontaneous
  Country: US (occurrence: US)
  Receive Date: 20220525
  Receipt Date: 20220525
  Transmission Date: 20220721
  Serious: Yes (Other)
  Sender: FDA-Public Use
  Company Number: US-ALLERGAN-2216563US

PATIENT
  Sex: Female
  Weight: 94.8 kg

DRUGS (9)
  1. SAVELLA [Suspect]
     Active Substance: MILNACIPRAN HYDROCHLORIDE
     Indication: Fibromyalgia
     Dosage: 25 MG, BID
     Route: 048
     Dates: start: 2021
  2. SYNTHROID [Concomitant]
     Active Substance: LEVOTHYROXINE SODIUM
     Dosage: 75 ?G
  3. SYNTHROID [Concomitant]
     Active Substance: LEVOTHYROXINE SODIUM
     Dosage: 50 ?G
  4. LYRICA [Concomitant]
     Active Substance: PREGABALIN
     Indication: Fibromyalgia
     Dosage: 150 MG, BID
  5. SINGULAIR [Concomitant]
     Active Substance: MONTELUKAST SODIUM
     Indication: Asthma
     Dosage: 10 MG, QD
  6. ADVAIR UNSPEC [Concomitant]
     Indication: Asthma
     Dosage: 1 DF, BID
  7. TRAZODONE [Concomitant]
     Active Substance: TRAZODONE HYDROCHLORIDE
     Indication: Sleep apnoea syndrome
     Dosage: 100 MG, QD
     Dates: start: 2005
  8. CLONAZEPAM [Concomitant]
     Active Substance: CLONAZEPAM
     Indication: Sleep apnoea syndrome
     Dosage: 1 MG, QD
  9. HYDROCODONE [Concomitant]
     Active Substance: HYDROCODONE
     Indication: Back injury
     Dosage: 10 MG, QD

REACTIONS (8)
  - Apnoea [Recovered/Resolved]
  - Eyelid ptosis [Recovered/Resolved]
  - Condition aggravated [Recovered/Resolved]
  - Altered visual depth perception [Not Recovered/Not Resolved]
  - Swelling of eyelid [Not Recovered/Not Resolved]
  - Contusion [Not Recovered/Not Resolved]
  - Skin abrasion [Not Recovered/Not Resolved]
  - Fall [Recovered/Resolved]

NARRATIVE: CASE EVENT DATE: 20211201
